FAERS Safety Report 12898283 (Version 3)
Quarter: 2017Q1

REPORT INFORMATION
  Report Type: Spontaneous
  Country: CH (occurrence: CH)
  Receive Date: 20161031
  Receipt Date: 20170318
  Transmission Date: 20170428
  Serious: Yes (Death, Life-Threatening, Hospitalization)
  Sender: FDA-Public Use
  Company Number: CH-B.I. PHARMACEUTICALS,INC./RIDGEFIELD-2016-BI-070216

PATIENT
  Age: 70 Year
  Sex: Male
  Weight: 84 kg

DRUGS (3)
  1. ATROVENT [Concomitant]
     Active Substance: IPRATROPIUM BROMIDE
     Indication: AIRWAY SECRETION CLEARANCE THERAPY
     Route: 065
     Dates: start: 201503
  2. OFEV [Suspect]
     Active Substance: NINTEDANIB
     Indication: IDIOPATHIC PULMONARY FIBROSIS
     Dosage: STRENGTH: 150
     Route: 065
     Dates: start: 201503, end: 20161016
  3. VENTOLIN [Concomitant]
     Active Substance: ALBUTEROL SULFATE
     Indication: AIRWAY SECRETION CLEARANCE THERAPY
     Route: 065
     Dates: start: 201503

REACTIONS (4)
  - Idiopathic pulmonary fibrosis [Fatal]
  - Pneumonia [Unknown]
  - Delirium [Not Recovered/Not Resolved]
  - Chills [Unknown]

NARRATIVE: CASE EVENT DATE: 20161016
